FAERS Safety Report 23819406 (Version 1)
Quarter: 2024Q2

REPORT INFORMATION
  Report Type: Spontaneous
  Country: CN (occurrence: CN)
  Receive Date: 20240506
  Receipt Date: 20240506
  Transmission Date: 20240715
  Serious: Yes (Other)
  Sender: FDA-Public Use
  Company Number: CN-ELI_LILLY_AND_COMPANY-CN202404013782

PATIENT
  Age: 18 Year
  Sex: Female
  Weight: 53.7 kg

DRUGS (2)
  1. OLANZAPINE [Suspect]
     Active Substance: OLANZAPINE
     Indication: Mental disorder
     Dosage: 15 MG, DAILY?DAILY DOSE: 15 MILLIGRAM
     Route: 048
     Dates: start: 20240325, end: 20240408
  2. OXCARBAZEPINE [Suspect]
     Active Substance: OXCARBAZEPINE
     Indication: Mood swings
     Dosage: 0.6 G, BID?DAILY DOSE: 1.2 GRAM
     Route: 048
     Dates: start: 20240401, end: 20240408

REACTIONS (1)
  - Hyponatraemia [Recovered/Resolved]

NARRATIVE: CASE EVENT DATE: 20240408
